FAERS Safety Report 7283305-9 (Version None)
Quarter: 2011Q1

REPORT INFORMATION
  Report Type: 
  Country: None (occurrence: None)
  Receive Date: 20110209
  Receipt Date: 20101203
  Transmission Date: 20110831
  Serious: No
  Sender: FDA-Public Use
  Company Number: US-BAYER-2010-006538

PATIENT
  Sex: Female
  Weight: 108 kg

DRUGS (4)
  1. BENICAR [Concomitant]
  2. ALEVE (CAPLET) [Suspect]
     Indication: HEADACHE
     Dosage: 660 MG, ONCE
     Route: 048
     Dates: start: 20101203
  3. CYMBALTA [Concomitant]
  4. LAMOTRIGINE [Concomitant]

REACTIONS (4)
  - FLUSHING [None]
  - NAUSEA [None]
  - PALPITATIONS [None]
  - MALAISE [None]
